FAERS Safety Report 20007234 (Version 1)
Quarter: 2021Q4

REPORT INFORMATION
  Report Type: Spontaneous
  Country: US (occurrence: US)
  Receive Date: 20211029
  Receipt Date: 20211029
  Transmission Date: 20220304
  Serious: Yes (Hospitalization)
  Sender: FDA-Public Use
  Company Number: US-AVET LIFESCIENCES LTD-2021-AVET-000041

PATIENT
  Age: 70 Year
  Sex: Female

DRUGS (9)
  1. TACROLIMUS [Interacting]
     Active Substance: TACROLIMUS
     Indication: Immunosuppression
  2. EMTRICITABINE\TENOFOVIR [Interacting]
     Active Substance: EMTRICITABINE\TENOFOVIR
     Indication: Prophylaxis against HIV infection
     Dosage: 200/300 MG DAILY
  3. MYCOPHENOLIC ACID [Concomitant]
     Active Substance: MYCOPHENOLIC ACID
  4. CLONIDINE [Concomitant]
     Active Substance: CLONIDINE
  5. QUETIAPINE [Concomitant]
     Active Substance: QUETIAPINE
  6. POTASSIUM [Concomitant]
     Active Substance: POTASSIUM
  7. PRAVASTATIN [Concomitant]
     Active Substance: PRAVASTATIN
  8. OXYMORPHONE [Concomitant]
     Active Substance: OXYMORPHONE
  9. LIDOCAINE [Concomitant]
     Active Substance: LIDOCAINE

REACTIONS (4)
  - Fanconi syndrome [Recovering/Resolving]
  - Drug interaction [Recovering/Resolving]
  - Chronic kidney disease [Recovering/Resolving]
  - Drug level increased [Recovering/Resolving]
